FAERS Safety Report 7412962-9 (Version None)
Quarter: 2011Q2

REPORT INFORMATION
  Report Type: 
  Country: None (occurrence: None)
  Receive Date: 20110413
  Receipt Date: 20110328
  Transmission Date: 20111010
  Serious: Yes (Other)
  Sender: FDA-Public Use
  Company Number: PHHY2011US26131

PATIENT
  Age: 54 Year
  Sex: Male

DRUGS (8)
  1. LINEZOLID [Interacting]
     Indication: BACTERIAL INFECTION
     Route: 042
  2. CILASTATIN W/IMIPENEM [Concomitant]
     Indication: BACTERIAL INFECTION
     Route: 042
  3. SERTRALINE [Suspect]
  4. TACROLIMUS [Concomitant]
     Indication: IMMUNOSUPPRESSION
  5. COTRIM [Concomitant]
  6. ESOMEPRAZOLE [Concomitant]
  7. DOCUSATE [Concomitant]
  8. CASPOFUNGIN [Concomitant]
     Indication: BACTERIAL INFECTION
     Route: 042

REACTIONS (11)
  - MUSCLE CONTRACTIONS INVOLUNTARY [None]
  - BALANCE DISORDER [None]
  - SEROTONIN SYNDROME [None]
  - AGITATION [None]
  - AGGRESSION [None]
  - RESTLESSNESS [None]
  - CONFUSIONAL STATE [None]
  - HALLUCINATION, VISUAL [None]
  - DRUG INTERACTION [None]
  - TREMOR [None]
  - FALL [None]
